FAERS Safety Report 5564955-4 (Version None)
Quarter: 2007Q4

REPORT INFORMATION
  Report Type: 
  Country: None (occurrence: None)
  Receive Date: 20071218
  Receipt Date: 20071213
  Transmission Date: 20080405
  Serious: Yes (Other)
  Sender: FDA-Public Use
  Company Number: B0499545A

PATIENT
  Sex: Male

DRUGS (3)
  1. MODACIN [Suspect]
     Indication: DRUG USE FOR UNKNOWN INDICATION
     Route: 042
     Dates: start: 20071113, end: 20071115
  2. PRODIF [Concomitant]
     Route: 042
     Dates: start: 20071110
  3. VANCOMYCIN HYDROCHLORIDE [Concomitant]
     Route: 042
     Dates: start: 20071110

REACTIONS (1)
  - HAEMOLYSIS [None]
